FAERS Safety Report 15950644 (Version 2)
Quarter: 2019Q1

REPORT INFORMATION
  Report Type: Spontaneous
  Country: SE (occurrence: SE)
  Receive Date: 20190212
  Receipt Date: 20190219
  Transmission Date: 20190417
  Serious: Yes (Other)
  Sender: FDA-Public Use
  Company Number: SE-BAYER-2019-019108

PATIENT
  Age: 29 Year
  Sex: Female

DRUGS (1)
  1. XOFIGO [Suspect]
     Active Substance: RADIUM RA-223 DICHLORIDE
     Dosage: UNK
     Dates: start: 20190124

REACTIONS (2)
  - Epistaxis [Recovered/Resolved]
  - Accidental exposure to product [None]

NARRATIVE: CASE EVENT DATE: 20190124
